FAERS Safety Report 14766456 (Version 2)
Quarter: 2018Q2

REPORT INFORMATION
  Report Type: Spontaneous
  Country: US (occurrence: US)
  Receive Date: 20180416
  Receipt Date: 20180501
  Transmission Date: 20180711
  Serious: Yes (Congenital Anomaly, Other)
  Sender: FDA-Public Use
  Company Number: US-AMGEN-USASP2018048117

PATIENT
  Age: 63 Year
  Sex: Female
  Weight: 56.24 kg

DRUGS (4)
  1. MULTI VIT [Concomitant]
     Dosage: UNK UNK, QHS
  2. RALOXIFENE. [Concomitant]
     Active Substance: RALOXIFENE
     Indication: BREAST CANCER
     Dosage: UNK UNK, QD
  3. PROLIA [Suspect]
     Active Substance: DENOSUMAB
     Indication: OSTEOPOROSIS POSTMENOPAUSAL
     Dosage: UNK
     Route: 065
  4. CA [Concomitant]
     Dosage: UNK UNK, QHS

REACTIONS (4)
  - Aphasia [Recovered/Resolved]
  - Mental impairment [Recovered/Resolved]
  - Euphoric mood [Recovered/Resolved]
  - Anger [Recovered/Resolved]

NARRATIVE: CASE EVENT DATE: 20171212
